FAERS Safety Report 12595072 (Version 2)
Quarter: 2016Q4

REPORT INFORMATION
  Report Type: Spontaneous
  Country: GB (occurrence: GB)
  Receive Date: 20160726
  Receipt Date: 20161026
  Transmission Date: 20170207
  Serious: Yes (Disabling)
  Sender: FDA-Public Use
  Company Number: GB-009507513-1607GBR007323

PATIENT
  Sex: Female

DRUGS (4)
  1. SINEMET CR [Suspect]
     Active Substance: CARBIDOPA\LEVODOPA
     Dosage: 2 TABLETS DAILY
     Route: 048
  2. ROTIGOTINE [Suspect]
     Active Substance: ROTIGOTINE
     Dosage: PATCH
  3. SINEMET PLUS [Suspect]
     Active Substance: CARBIDOPA\LEVODOPA
     Dosage: 3/4TH TABLET DURING THE DAY
     Route: 048
  4. SINEMET CR [Suspect]
     Active Substance: CARBIDOPA\LEVODOPA
     Dosage: 1 TABLET IN THE EVENING
     Route: 048

REACTIONS (18)
  - Excessive eye blinking [Unknown]
  - Wrong technique in product usage process [Unknown]
  - Drug dose omission [Unknown]
  - Depression [Unknown]
  - Vision blurred [Unknown]
  - Pain [Recovering/Resolving]
  - Drug effect incomplete [Unknown]
  - Increased appetite [Unknown]
  - Hallucination [Unknown]
  - Slow speech [Unknown]
  - Weight increased [Unknown]
  - Lack of spontaneous speech [Unknown]
  - Sciatica [Unknown]
  - Poor quality sleep [Unknown]
  - Therapeutic response unexpected [Unknown]
  - Photopsia [Unknown]
  - Food craving [Unknown]
  - Eye disorder [Unknown]

NARRATIVE: CASE EVENT DATE: 201607
